FAERS Safety Report 6041889-2 (Version None)
Quarter: 2009Q1

REPORT INFORMATION
  Report Type: 
  Country: None (occurrence: None)
  Receive Date: 20090116
  Receipt Date: 20090112
  Transmission Date: 20090719
  Serious: Yes (Hospitalization, Other)
  Sender: FDA-Public Use
  Company Number: GB-JNJFOC-20090101776

PATIENT
  Age: 63 Year
  Sex: Female

DRUGS (9)
  1. RISPERDAL CONSTA [Suspect]
     Indication: BIPOLAR DISORDER
     Route: 030
  2. ALENDRONIC ACID [Concomitant]
     Route: 048
  3. ARIPIPRAZOLE [Concomitant]
     Indication: BIPOLAR DISORDER
     Route: 048
  4. BENDROFLUMETHIAZIDE [Concomitant]
     Indication: HYPERTENSION
     Route: 048
  5. CALCICHEW D3 [Concomitant]
     Route: 048
  6. LETROZOLE [Concomitant]
     Indication: BREAST CANCER
     Route: 048
  7. LISINOPRIL [Concomitant]
     Indication: HYPERTENSION
     Route: 048
  8. ACETAMINOPHEN [Concomitant]
     Route: 048
  9. VALPROATE SODIUM [Concomitant]
     Indication: BIPOLAR DISORDER
     Route: 048

REACTIONS (2)
  - CEREBROVASCULAR ACCIDENT [None]
  - CONFUSIONAL STATE [None]
